FAERS Safety Report 5415373-0 (Version None)
Quarter: 2007Q3

REPORT INFORMATION
  Report Type: 
  Country: None (occurrence: None)
  Receive Date: 20070814
  Receipt Date: 20070814
  Transmission Date: 20080115
  Serious: Yes (Other)
  Sender: FDA-Public Use
  Company Number: None

PATIENT
  Sex: Male
  Weight: 77.1115 kg

DRUGS (1)
  1. CASODEX [Suspect]
     Indication: BENIGN PROSTATIC HYPERPLASIA
     Dosage: ONE TAB DAILY ORAL
     Route: 048
     Dates: start: 20070701

REACTIONS (2)
  - CONSTIPATION [None]
  - RECTAL TENESMUS [None]
